FAERS Safety Report 5938428-0 (Version None)
Quarter: 2008Q4

REPORT INFORMATION
  Report Type: 
  Country: None (occurrence: None)
  Receive Date: 20081103
  Receipt Date: 20081029
  Transmission Date: 20090506
  Serious: Yes (Other)
  Sender: FDA-Public Use
  Company Number: FI-RB-005657-08

PATIENT
  Sex: Female

DRUGS (1)
  1. BUPRENORPHINE HCL [Suspect]
     Indication: DRUG USE FOR UNKNOWN INDICATION
     Dosage: UNKNOWN DOSE OR FREQUENCY
     Route: 065

REACTIONS (4)
  - DRUG EXPOSURE DURING PREGNANCY [None]
  - INCORRECT ROUTE OF DRUG ADMINISTRATION [None]
  - PREMATURE BABY [None]
  - SUBSTANCE ABUSE [None]
